FAERS Safety Report 9236033 (Version 2)
Quarter: 2013Q2

REPORT INFORMATION
  Report Type: Report from Study
  Country: AU (occurrence: AU)
  Receive Date: 20130417
  Receipt Date: 20130628
  Transmission Date: 20140414
  Serious: Yes (Death, Life-Threatening, Hospitalization)
  Sender: FDA-Public Use
  Company Number: AU-SANOFI-AVENTIS-200219997GDDC

PATIENT
  Age: 62 Year
  Sex: Female
  Weight: 86.9 kg

DRUGS (11)
  1. DOCETAXEL [Suspect]
     Indication: BREAST CANCER
     Route: 042
     Dates: start: 20020814, end: 20021016
  2. DOXORUBICIN [Suspect]
     Indication: BREAST CANCER
     Route: 042
  3. CYCLOPHOSPHAMIDE [Suspect]
     Indication: BREAST CANCER
     Route: 042
  4. LASIX [Suspect]
     Indication: FLUID RETENTION
     Route: 048
     Dates: start: 20021016, end: 20021020
  5. STEMETIL [Concomitant]
     Route: 048
     Dates: start: 20020521
  6. TRAMAL [Concomitant]
     Route: 048
  7. PANADOL [Concomitant]
     Route: 048
     Dates: start: 20011002
  8. OROXINE [Concomitant]
     Route: 048
     Dates: start: 200107
  9. VOLTAREN [Concomitant]
     Route: 048
     Dates: start: 2002, end: 20021020
  10. DEXAMETHASONE [Concomitant]
     Route: 048
     Dates: start: 20021015, end: 20021017
  11. TROPISETRON [Concomitant]
     Route: 042
     Dates: start: 20021016, end: 20021016

REACTIONS (14)
  - Interstitial lung disease [Fatal]
  - Dyspnoea [Not Recovered/Not Resolved]
  - Pyrexia [Recovered/Resolved]
  - Myalgia [Recovered/Resolved]
  - Chills [Recovered/Resolved]
  - Oropharyngeal pain [Recovered/Resolved]
  - Sputum discoloured [Recovered/Resolved]
  - Orthostatic hypotension [Recovered/Resolved]
  - Circulatory collapse [Recovered/Resolved]
  - Neutropenic infection [Recovered/Resolved]
  - Pulmonary embolism [Recovered/Resolved]
  - Dyspnoea [Recovered/Resolved]
  - Deep vein thrombosis [Recovered/Resolved]
  - Local swelling [Recovered/Resolved]
